FAERS Safety Report 21184778 (Version 1)
Quarter: 2022Q3

REPORT INFORMATION
  Report Type: Spontaneous
  Country: US (occurrence: None)
  Receive Date: 20220806
  Receipt Date: 20220806
  Transmission Date: 20221027
  Serious: Yes (Hospitalization)
  Sender: FDA-Public Use
  Company Number: None

PATIENT
  Age: 81 Year
  Sex: Female
  Weight: 54.9 kg

DRUGS (3)
  1. DOCETAXEL [Suspect]
     Active Substance: DOCETAXEL
     Dates: end: 20220726
  2. PERTUZUMAB [Suspect]
     Active Substance: PERTUZUMAB
     Dates: end: 20220726
  3. HERCEPTIN [Suspect]
     Active Substance: TRASTUZUMAB
     Dates: end: 20220726

REACTIONS (6)
  - Nausea [None]
  - Diarrhoea [None]
  - Hypophagia [None]
  - Hypokalaemia [None]
  - Hypomagnesaemia [None]
  - Urinary tract infection [None]

NARRATIVE: CASE EVENT DATE: 20220805
